FAERS Safety Report 24254383 (Version 1)
Quarter: 2024Q3

REPORT INFORMATION
  Report Type: Spontaneous
  Country: US (occurrence: None)
  Receive Date: 20240826
  Receipt Date: 20240826
  Transmission Date: 20241017
  Serious: No
  Sender: Public
  Company Number: None

PATIENT
  Age: 52 Year
  Sex: Female

DRUGS (1)
  1. MYCOPHENOLATE MOFETIL [Suspect]
     Active Substance: MYCOPHENOLATE MOFETIL
     Indication: Rheumatoid arthritis
     Dosage: 500 MG TWICE A DAY BUCCAL
     Route: 002
     Dates: start: 20240103, end: 20240322

REACTIONS (2)
  - Gingival swelling [None]
  - Gingival bleeding [None]

NARRATIVE: CASE EVENT DATE: 20240322
